FAERS Safety Report 6603099-7 (Version None)
Quarter: 2010Q1

REPORT INFORMATION
  Report Type: 
  Country: None (occurrence: None)
  Receive Date: 20100218
  Receipt Date: 20100208
  Transmission Date: 20100710
  Serious: Yes (Other)
  Sender: FDA-Public Use
  Company Number: 2010SP007907

PATIENT
  Age: 47 Year
  Sex: Female
  Weight: 46 kg

DRUGS (3)
  1. CLARITIN-D [Suspect]
     Indication: RHINITIS ALLERGIC
     Dosage: Q12H; PO
     Route: 048
     Dates: start: 20100206, end: 20100207
  2. CLORATADD D [Concomitant]
  3. CLARILERG [Concomitant]

REACTIONS (3)
  - CHILLS [None]
  - TACHYCARDIA [None]
  - TREMOR [None]
